FAERS Safety Report 9671388 (Version 1)
Quarter: 2013Q4

REPORT INFORMATION
  Report Type: Spontaneous
  Country: US (occurrence: US)
  Receive Date: 20131106
  Receipt Date: 20131106
  Transmission Date: 20140711
  Serious: No
  Sender: FDA-Public Use
  Company Number: US-TEVA-442984USA

PATIENT
  Age: 28 Year
  Sex: Female
  Weight: 99.88 kg

DRUGS (4)
  1. PLAN B ONE-STEP [Suspect]
     Dosage: 1.5 MILLIGRAM DAILY;
     Route: 048
     Dates: start: 20130910, end: 20130910
  2. PLAN B ONE-STEP [Suspect]
     Dosage: 1.5 MILLIGRAM DAILY;
     Route: 048
  3. MULTIVITAMINS [Concomitant]
     Indication: NUTRITIONAL SUPPLEMENTATION
  4. LISINOPRIL [Concomitant]
     Indication: HYPERTENSION

REACTIONS (4)
  - Human chorionic gonadotropin decreased [Unknown]
  - Menstruation irregular [Not Recovered/Not Resolved]
  - Pregnancy [Unknown]
  - Metrorrhagia [Not Recovered/Not Resolved]
